FAERS Safety Report 14414587 (Version 1)
Quarter: 2018Q1

REPORT INFORMATION
  Report Type: Spontaneous
  Country: US (occurrence: US)
  Receive Date: 20180120
  Receipt Date: 20180120
  Transmission Date: 20180509
  Serious: No
  Sender: FDA-Public Use
  Company Number: US-009507513-1801USA006375

PATIENT
  Sex: Female
  Weight: 92.06 kg

DRUGS (1)
  1. IMPLANON [Suspect]
     Active Substance: ETONOGESTREL
     Dosage: UNK
     Route: 059
     Dates: start: 20160121, end: 20180117

REACTIONS (2)
  - Weight increased [Unknown]
  - Incorrect drug administration duration [Unknown]
